FAERS Safety Report 5358300-7 (Version None)
Quarter: 2007Q2

REPORT INFORMATION
  Report Type: 
  Country: None (occurrence: None)
  Receive Date: 20070530
  Receipt Date: 20061128
  Transmission Date: 20071010
  Serious: Yes (Hospitalization)
  Sender: FDA-Public Use
  Company Number: US200603001442

PATIENT
  Age: 47 Year
  Sex: Male
  Weight: 100.7 kg

DRUGS (2)
  1. ZYPREXA [Suspect]
     Indication: PSYCHOTIC DISORDER
     Dates: start: 20010101, end: 20040101
  2. ARIPIPRAZOLE [Concomitant]

REACTIONS (6)
  - BLOOD CHOLESTEROL ABNORMAL [None]
  - BLOOD TRIGLYCERIDES INCREASED [None]
  - DIABETES MELLITUS [None]
  - HYPERGLYCAEMIA [None]
  - METABOLIC DISORDER [None]
  - OBESITY [None]
